FAERS Safety Report 25789395 (Version 1)
Quarter: 2025Q3

REPORT INFORMATION
  Report Type: Spontaneous
  Country: US (occurrence: US)
  Receive Date: 20250911
  Receipt Date: 20250911
  Transmission Date: 20251020
  Serious: Yes (Other)
  Sender: TEVA
  Company Number: US-TEVA-VS-3368675

PATIENT
  Age: 15 Month
  Sex: Male

DRUGS (3)
  1. VINCRISTINE [Suspect]
     Active Substance: VINCRISTINE
     Indication: Nephroblastoma
     Route: 065
  2. DACTINOMYCIN [Concomitant]
     Active Substance: DACTINOMYCIN
     Indication: Nephroblastoma
     Route: 065
  3. DEXAMETHASONE [Concomitant]
     Active Substance: DEXAMETHASONE
     Indication: Nephroblastoma
     Route: 065

REACTIONS (5)
  - Ocular toxicity [Recovered/Resolved]
  - Eyelid ptosis [Recovered/Resolved]
  - Strabismus [Unknown]
  - Neurotoxicity [Recovered/Resolved]
  - Pupillary reflex impaired [Recovered/Resolved]
